FAERS Safety Report 24952441 (Version 1)
Quarter: 2025Q1

REPORT INFORMATION
  Report Type: Spontaneous
  Country: FR (occurrence: FR)
  Receive Date: 20250210
  Receipt Date: 20250210
  Transmission Date: 20250409
  Serious: Yes (Other)
  Sender: AMGEN
  Company Number: FR-AMGEN-FRASP2025023877

PATIENT

DRUGS (4)
  1. BLINATUMOMAB [Suspect]
     Active Substance: BLINATUMOMAB
     Indication: B-cell type acute leukaemia
     Dosage: 9 MICROGRAM, QD FOR 7 DAYS
     Route: 040
  2. BLINATUMOMAB [Suspect]
     Active Substance: BLINATUMOMAB
     Indication: Philadelphia chromosome positive
     Dosage: 28 MICROGRAM, QD FOR 21 DAYS
     Route: 040
  3. CYCLOPHOSPHAMIDE\CYTARABINE\DEXAMETHASONE\DOXORUBICIN\METHOTREXATE\VIN [Concomitant]
     Active Substance: CYCLOPHOSPHAMIDE\CYTARABINE\DEXAMETHASONE\DOXORUBICIN\METHOTREXATE\VINCRISTINE
     Indication: B-cell type acute leukaemia
     Route: 065
  4. CYCLOPHOSPHAMIDE\CYTARABINE\DEXAMETHASONE\DOXORUBICIN\METHOTREXATE\VIN [Concomitant]
     Active Substance: CYCLOPHOSPHAMIDE\CYTARABINE\DEXAMETHASONE\DOXORUBICIN\METHOTREXATE\VINCRISTINE
     Indication: Philadelphia chromosome positive

REACTIONS (8)
  - Scedosporium infection [Unknown]
  - Gastrointestinal disorder [Unknown]
  - Oesophageal ulcer [Unknown]
  - Immune effector cell-associated neurotoxicity syndrome [Unknown]
  - Febrile neutropenia [Unknown]
  - Bacteraemia [Unknown]
  - Cytokine release syndrome [Unknown]
  - Bronchopulmonary aspergillosis [Unknown]
